FAERS Safety Report 25939746 (Version 1)
Quarter: 2025Q4

REPORT INFORMATION
  Report Type: Spontaneous
  Country: US (occurrence: US)
  Receive Date: 20251020
  Receipt Date: 20251020
  Transmission Date: 20260118
  Serious: Yes (Life-Threatening, Hospitalization, Other)
  Sender: AMGEN
  Company Number: US-AMGEN-USASP2025204394

PATIENT
  Age: 30 Year
  Sex: Female

DRUGS (15)
  1. RITUXIMAB [Suspect]
     Active Substance: RITUXIMAB
     Indication: Oral herpes
     Dosage: UNK, SIX COURCES
     Route: 065
  2. RITUXIMAB [Suspect]
     Active Substance: RITUXIMAB
     Indication: Angiocentric lymphoma
  3. PREDNISONE [Suspect]
     Active Substance: PREDNISONE
     Indication: Product used for unknown indication
     Dosage: UNK
     Route: 048
  4. FILGRASTIM [Suspect]
     Active Substance: FILGRASTIM
     Indication: White blood cell count decreased
     Dosage: UNK
     Route: 065
  5. DOXORUBICIN [Concomitant]
     Active Substance: DOXORUBICIN
     Indication: Oral herpes
  6. DOXORUBICIN [Concomitant]
     Active Substance: DOXORUBICIN
     Indication: Angiocentric lymphoma
  7. VINCRISTINE [Concomitant]
     Active Substance: VINCRISTINE
     Indication: Oral herpes
  8. VINCRISTINE [Concomitant]
     Active Substance: VINCRISTINE
     Indication: Angiocentric lymphoma
  9. CYCLOPHOSPHAMIDE [Concomitant]
     Active Substance: CYCLOPHOSPHAMIDE
     Indication: Oral herpes
  10. CYCLOPHOSPHAMIDE [Concomitant]
     Active Substance: CYCLOPHOSPHAMIDE
     Indication: Angiocentric lymphoma
  11. CYCLOPHOSPHAMIDE [Concomitant]
     Active Substance: CYCLOPHOSPHAMIDE
     Indication: B precursor type acute leukaemia
  12. PREDNISOLONE [Concomitant]
     Active Substance: PREDNISOLONE
     Indication: Oral herpes
  13. PREDNISOLONE [Concomitant]
     Active Substance: PREDNISOLONE
     Indication: Angiocentric lymphoma
  14. ETOPOSIDE [Concomitant]
     Active Substance: ETOPOSIDE
     Indication: Oral herpes
  15. ETOPOSIDE [Concomitant]
     Active Substance: ETOPOSIDE
     Indication: Angiocentric lymphoma

REACTIONS (13)
  - Cytokine release syndrome [Unknown]
  - B precursor type acute leukaemia [Unknown]
  - Influenza [Unknown]
  - Immune effector cell-associated neurotoxicity syndrome [Unknown]
  - Bradycardia [Unknown]
  - Posterior reversible encephalopathy syndrome [Unknown]
  - Agitation [Unknown]
  - Hypertension [Unknown]
  - Lactic acidosis [Unknown]
  - Leukopenia [Recovered/Resolved]
  - Parainfluenzae virus infection [Unknown]
  - Drug effective for unapproved indication [Unknown]
  - Off label use [Unknown]
